FAERS Safety Report 19458987 (Version 1)
Quarter: 2021Q2

REPORT INFORMATION
  Report Type: Spontaneous
  Country: US (occurrence: US)
  Receive Date: 20210625
  Receipt Date: 20210625
  Transmission Date: 20210717
  Serious: No
  Sender: FDA-Public Use
  Company Number: None

PATIENT
  Age: 60 Year
  Sex: Female

DRUGS (1)
  1. MAYZENT [Suspect]
     Active Substance: SIPONIMOD
     Route: 048
     Dates: start: 202004, end: 202105

REACTIONS (3)
  - Therapy cessation [None]
  - Rash [None]
  - Hypersensitivity [None]

NARRATIVE: CASE EVENT DATE: 20210625
